FAERS Safety Report 17186977 (Version 4)
Quarter: 2022Q1

REPORT INFORMATION
  Report Type: Spontaneous
  Country: US (occurrence: US)
  Receive Date: 20191220
  Receipt Date: 20220316
  Transmission Date: 20220423
  Serious: Yes (Hospitalization, Other)
  Sender: FDA-Public Use
  Company Number: US-TEVA-2019-US-1154864

PATIENT
  Age: 63 Year
  Sex: Male
  Weight: 83.46 kg

DRUGS (25)
  1. HYDROCHLOROTHIAZIDE\VALSARTAN [Suspect]
     Active Substance: HYDROCHLOROTHIAZIDE\VALSARTAN
     Indication: Hypertension
     Dosage: 320 MILLIGRAM DAILY;
     Route: 048
     Dates: start: 20130705, end: 20151028
  2. HYDROCHLOROTHIAZIDE\VALSARTAN [Suspect]
     Active Substance: HYDROCHLOROTHIAZIDE\VALSARTAN
     Dosage: DOSAGE: 160-12.5 MILLIGRAM
     Route: 065
  3. VALSARTAN [Suspect]
     Active Substance: VALSARTAN
     Indication: Hypertension
     Dosage: 320 MILLIGRAM DAILY;
     Route: 048
     Dates: start: 20160830, end: 20180801
  4. HYDROCHLOROTHIAZIDE\VALSARTAN [Suspect]
     Active Substance: HYDROCHLOROTHIAZIDE\VALSARTAN
     Dosage: DOSAGE: 160-12.5MILLIGRAM;?HYDROCHLOROTHIAZIDE W/VALSARTAN SANDOZ
     Route: 065
  5. DIOVAN HCT [Suspect]
     Active Substance: HYDROCHLOROTHIAZIDE\VALSARTAN
     Dosage: DOSAGE: 160-12.MILLIGRAM; TAKE ONE TABLET BY MOUTH DAILY
     Route: 048
  6. HYDROCHLOROTHIAZIDE\VALSARTAN [Suspect]
     Active Substance: HYDROCHLOROTHIAZIDE\VALSARTAN
     Dosage: DOSAGE: 160-12.5MILLIGRAM;
     Route: 065
  7. HYDROCHLOROTHIAZIDE\VALSARTAN [Suspect]
     Active Substance: HYDROCHLOROTHIAZIDE\VALSARTAN
     Dosage: DOSAGE: 320-12.5MILLIGRAM;?HYDROCHLOROTHIAZIDE W/VALSARTAN PAR
     Route: 065
  8. VALSARTAN [Suspect]
     Active Substance: VALSARTAN
     Indication: Hypertension
     Dosage: DOSAGE: 320 MG
     Route: 048
  9. INSULIN NOS [Concomitant]
     Active Substance: INSULIN NOS
     Indication: Type 2 diabetes mellitus
     Dosage: AS NEEDED
     Dates: start: 2009
  10. JANUVIA [Concomitant]
     Active Substance: SITAGLIPTIN PHOSPHATE
     Indication: Type 2 diabetes mellitus
     Dosage: 100 MILLIGRAM DAILY;
     Route: 048
     Dates: start: 2009
  11. METFORMIN [Concomitant]
     Active Substance: METFORMIN HYDROCHLORIDE
     Indication: Type 2 diabetes mellitus
     Dosage: 2000 MILLIGRAM DAILY;
     Dates: start: 2009
  12. GLIMEPIRIDE [Concomitant]
     Active Substance: GLIMEPIRIDE
     Indication: Type 2 diabetes mellitus
     Dosage: 4 MILLIGRAM DAILY;
     Dates: start: 2009
  13. ADVIL [Concomitant]
     Active Substance: IBUPROFEN
     Indication: Pain
     Dosage: 400 MILLIGRAM AS NEEDED
     Dates: start: 2015
  14. TYLENOL [Concomitant]
     Active Substance: ACETAMINOPHEN
     Indication: Pain
     Dosage: 500MILLIGRAM AS NEEDED
     Dates: start: 1999
  15. COLD SYRUP [Concomitant]
     Indication: Influenza like illness
     Dosage: NORMAL DOSE, AS NEEDED
  16. COLD SYRUP [Concomitant]
     Indication: Nasopharyngitis
  17. GLUCOTROL XL [Concomitant]
     Active Substance: GLIPIZIDE
     Dosage: 20 MILLIGRAM DAILY; EVERY MORNING
     Route: 048
  18. PRAVASTATIN SODIUM [Concomitant]
     Active Substance: PRAVASTATIN SODIUM
     Dosage: 40 MILLIGRAM DAILY; AT BEDTIME
     Route: 048
  19. CIALIS [Concomitant]
     Active Substance: TADALAFIL
     Dosage: USE AS DIRECTED
  20. ACTOS [Concomitant]
     Active Substance: PIOGLITAZONE HYDROCHLORIDE
     Dosage: 30 MILLIGRAM DAILY;
     Route: 048
  21. FISH OIL [Concomitant]
     Active Substance: FISH OIL
     Dosage: 2000 MILLIGRAM DAILY;
     Route: 048
  22. ASPIRIN [Concomitant]
     Active Substance: ASPIRIN
     Dosage: 81 MILLIGRAM DAILY;
     Route: 048
  23. LOTRISONE [Concomitant]
     Active Substance: BETAMETHASONE DIPROPIONATE\CLOTRIMAZOLE
     Dosage: 1-0.05 PERCENT;  BID APPLY CREAM TO AFFECTED AREA TWICE PER DAY
  24. OLMESARTAN [Concomitant]
     Active Substance: OLMESARTAN
     Dosage: 40 MILLIGRAM DAILY;
  25. STEGLATRO [Concomitant]
     Active Substance: ERTUGLIFLOZIN PIDOLATE

REACTIONS (2)
  - Rectal cancer [Recovered/Resolved]
  - Colon adenoma [Unknown]

NARRATIVE: CASE EVENT DATE: 20190611
